FAERS Safety Report 9527632 (Version 1)
Quarter: 2013Q1

REPORT INFORMATION
  Report Type: Spontaneous
  Country: US (occurrence: None)
  Receive Date: 20130313
  Receipt Date: 20130313
  Transmission Date: 20140127
  Serious: Yes (Other)
  Sender: FDA-Public Use
  Company Number: 1000041021

PATIENT
  Age: 54 Year
  Sex: Female
  Weight: 136.1 kg

DRUGS (7)
  1. SAVELLA [Suspect]
     Indication: DEPRESSION
     Dosage: 50 MG, 1 IN 1 D
     Dates: start: 201104
  2. WELLBUTRIN [Suspect]
     Indication: DEPRESSION
     Dates: start: 201105, end: 20121101
  3. LISINOPRIL/HYDROCHLOROTHIAZIDE [Concomitant]
  4. CYMBALTA [Concomitant]
  5. MAGNESIUM [Concomitant]
  6. CYCLOBENZAPRINE [Concomitant]
  7. CALCIUM [Concomitant]

REACTIONS (4)
  - Hearing impaired [None]
  - Tremor [None]
  - Fall [None]
  - Ankle fracture [None]
